FAERS Safety Report 21027262 (Version 1)
Quarter: 2022Q2

REPORT INFORMATION
  Report Type: Spontaneous
  Country: US (occurrence: US)
  Receive Date: 20220630
  Receipt Date: 20220630
  Transmission Date: 20220721
  Serious: No
  Sender: FDA-Public Use
  Company Number: US-ALM-HQ-US-2022-0732

PATIENT
  Age: 47 Year
  Sex: Male

DRUGS (2)
  1. KLISYRI [Suspect]
     Active Substance: TIRBANIBULIN
     Indication: Actinic keratosis
     Route: 061
  2. VASELINE PURE [Concomitant]
     Active Substance: PETROLATUM

REACTIONS (1)
  - Application site vesicles [Recovered/Resolved with Sequelae]
